FAERS Safety Report 8778145 (Version 1)
Quarter: 2012Q4

REPORT INFORMATION
  Report Type: 
  Country: US (occurrence: US)
  Receive Date: 20120912
  Receipt Date: 20120912
  Transmission Date: 20130627
  Serious: No
  Sender: FDA-Public Use
  Company Number: US-ASTRAZENECA-2012SE69086

PATIENT

DRUGS (1)
  1. ESOMEPRAZOLE [Suspect]
     Route: 048

REACTIONS (3)
  - Choking [Unknown]
  - Discomfort [Unknown]
  - Increased upper airway secretion [Unknown]
